FAERS Safety Report 7802161-0 (Version None)
Quarter: 2011Q4

REPORT INFORMATION
  Report Type: 
  Country: None (occurrence: None)
  Receive Date: 20111007
  Receipt Date: 20110927
  Transmission Date: 20120403
  Serious: Yes (Other)
  Sender: FDA-Public Use
  Company Number: BR-JNJFOC-20110904567

PATIENT
  Age: 58 Year
  Sex: Female
  Weight: 89 kg

DRUGS (13)
  1. FLUOXETINE [Suspect]
     Indication: PSORIATIC ARTHROPATHY
     Route: 065
  2. PHENERGAN [Suspect]
     Indication: PRODUCT USED FOR UNKNOWN INDICATION
     Route: 065
  3. CORTISONE ACETATE [Suspect]
     Route: 065
  4. REMICADE [Suspect]
     Route: 042
     Dates: end: 20110801
  5. PRESSAT [Concomitant]
     Indication: HYPERTENSION
     Route: 065
  6. MODURETIC 5-50 [Concomitant]
     Indication: HYPERTENSION
     Route: 065
  7. OMEPRAZOLE [Concomitant]
     Indication: GASTRIC DISORDER
     Route: 065
  8. MELOXICAM [Suspect]
     Indication: PSORIATIC ARTHROPATHY
     Route: 065
  9. TYLENOL-500 [Concomitant]
     Indication: ARTHRALGIA
     Route: 065
  10. REMICADE [Suspect]
     Route: 042
     Dates: start: 20110923
  11. REMICADE [Suspect]
     Indication: PSORIATIC ARTHROPATHY
     Route: 042
  12. CORTISONE ACETATE [Suspect]
     Indication: PSORIATIC ARTHROPATHY
     Route: 065
  13. LOSARTAN POTASSIUM [Concomitant]
     Indication: HYPERTENSION
     Route: 065

REACTIONS (11)
  - PSORIATIC ARTHROPATHY [None]
  - CHOLELITHIASIS [None]
  - BLOOD GLUCOSE FLUCTUATION [None]
  - FEELING JITTERY [None]
  - PRURITUS [None]
  - PSORIASIS [None]
  - ARTHRALGIA [None]
  - NERVOUSNESS [None]
  - SELF ESTEEM DECREASED [None]
  - RENAL IMPAIRMENT [None]
  - SOMNOLENCE [None]
